FAERS Safety Report 5399554-0 (Version None)
Quarter: 2007Q3

REPORT INFORMATION
  Report Type: 
  Country: None (occurrence: None)
  Receive Date: 20070727
  Receipt Date: 20070717
  Transmission Date: 20080115
  Serious: Yes (Disabling)
  Sender: FDA-Public Use
  Company Number: JP-ABBOTT-07P-087-0374864-00

PATIENT
  Sex: Male

DRUGS (5)
  1. NORVIR SOFT CAPSULES [Suspect]
     Indication: HIV INFECTION
     Route: 048
     Dates: start: 20060401
  2. LAMIVUDINE [Suspect]
     Indication: HIV INFECTION
     Route: 048
     Dates: start: 20060401
  3. ATAZANAVIR SULFATE [Suspect]
     Indication: HIV INFECTION
     Route: 048
     Dates: start: 20060801
  4. TENOFOVIR [Suspect]
     Indication: HIV INFECTION
     Route: 048
     Dates: start: 20060801
  5. PENTAMIDINE ISETHIONATE [Concomitant]
     Indication: ANTIFUNGAL PROPHYLAXIS
     Route: 055
     Dates: start: 20060401, end: 20061214

REACTIONS (1)
  - OSTEONECROSIS [None]
